FAERS Safety Report 4591945-0 (Version None)
Quarter: 2005Q1

REPORT INFORMATION
  Report Type: 
  Country: None (occurrence: None)
  Receive Date: 20050225
  Receipt Date: 20050127
  Transmission Date: 20050727
  Serious: Yes (Hospitalization, Disabling)
  Sender: FDA-Public Use
  Company Number: US-MERCK-0501USA04262

PATIENT
  Age: 84 Year
  Sex: Male

DRUGS (2)
  1. VIOXX [Suspect]
     Indication: OSTEOARTHRITIS
     Route: 048
     Dates: start: 20020101
  2. ASPIRIN [Concomitant]
     Route: 065

REACTIONS (3)
  - ARTHROPATHY [None]
  - ASTHENIA [None]
  - OVERDOSE [None]
